FAERS Safety Report 6218689-3 (Version None)
Quarter: 2009Q2

REPORT INFORMATION
  Report Type: 
  Country: None (occurrence: None)
  Receive Date: 20090608
  Receipt Date: 20090529
  Transmission Date: 20091009
  Serious: No
  Sender: FDA-Public Use
  Company Number: US-B.I. PHARMACEUTICALS,INC./RIDGEFIELD-2009-BP-06740BP

PATIENT
  Sex: Female

DRUGS (5)
  1. ZANTAC 75 [Suspect]
     Indication: DYSPEPSIA
     Dosage: 75MG
     Route: 048
     Dates: start: 20090515, end: 20090529
  2. SEROQUEL [Concomitant]
     Indication: SLEEP DISORDER
  3. LEXAPRO [Concomitant]
     Indication: DEPRESSION
  4. VALIUM [Concomitant]
     Indication: ANXIETY
  5. RITALIN [Concomitant]
     Indication: ATTENTION DEFICIT/HYPERACTIVITY DISORDER

REACTIONS (2)
  - ABNORMAL FAECES [None]
  - FAECES DISCOLOURED [None]
